FAERS Safety Report 10266630 (Version 1)
Quarter: 2014Q2

REPORT INFORMATION
  Report Type: Spontaneous
  Country: US (occurrence: None)
  Receive Date: 20140625
  Receipt Date: 20140625
  Transmission Date: 20141212
  Serious: Yes (Other)
  Sender: FDA-Public Use
  Company Number: None

PATIENT
  Age: 44 Year
  Sex: Female
  Weight: 95.26 kg

DRUGS (2)
  1. MIRTAZAPINE [Suspect]
     Indication: ANXIETY
     Dosage: 1-2 PILLS  AT BEDTIME TAKEN BY MOUTH
     Route: 048
     Dates: start: 20140603, end: 20140609
  2. MIRTAZAPINE [Suspect]
     Indication: SLEEP DISORDER
     Dosage: 1-2 PILLS  AT BEDTIME TAKEN BY MOUTH
     Route: 048
     Dates: start: 20140603, end: 20140609

REACTIONS (6)
  - Anxiety [None]
  - Suicidal ideation [None]
  - Insomnia [None]
  - Depression [None]
  - Pollakiuria [None]
  - Abnormal dreams [None]
